FAERS Safety Report 13335460 (Version 7)
Quarter: 2020Q2

REPORT INFORMATION
  Report Type: Report from Study
  Country: US (occurrence: US)
  Receive Date: 20170314
  Receipt Date: 20200604
  Transmission Date: 20200713
  Serious: Yes (Hospitalization, Other)
  Sender: FDA-Public Use
  Company Number: US-PFIZER INC-2017071072

PATIENT
  Age: 71 Year
  Sex: Female

DRUGS (6)
  1. IBRANCE [Suspect]
     Active Substance: PALBOCICLIB
     Indication: BREAST CANCER FEMALE
     Dosage: 125 MG, DAILY
     Route: 048
     Dates: start: 20170201
  2. IBRANCE [Suspect]
     Active Substance: PALBOCICLIB
     Dosage: 125 MG, CYCLIC (DAILY 21 DAYS ON/7 DAYS OFF)
     Route: 048
     Dates: start: 20191121, end: 20200213
  3. IBRANCE [Suspect]
     Active Substance: PALBOCICLIB
     Dosage: 125 MG, CYCLIC (DAILY 21 DAYS ON/7 DAYS OFF)
     Route: 048
     Dates: start: 20200409
  4. IRON [Concomitant]
     Active Substance: IRON
     Dosage: UNK
  5. IBRANCE [Suspect]
     Active Substance: PALBOCICLIB
     Dosage: 100 MG, CYCLIC(DAILY 21 DAYS ON/7 DAYS OFF)
     Route: 048
     Dates: start: 20200512
  6. LETROZOLE. [Concomitant]
     Active Substance: LETROZOLE
     Dosage: UNK

REACTIONS (12)
  - Alopecia [Unknown]
  - Syncope [Unknown]
  - Decreased appetite [Recovered/Resolved]
  - Blood count abnormal [Recovering/Resolving]
  - Cough [Unknown]
  - Asthenia [Unknown]
  - White blood cell count decreased [Recovering/Resolving]
  - Taste disorder [Unknown]
  - Nausea [Unknown]
  - Fatigue [Unknown]
  - Appetite disorder [Unknown]
  - Red blood cell count decreased [Unknown]
